APPROVED DRUG PRODUCT: CLINDAMYCIN PHOSPHATE
Active Ingredient: CLINDAMYCIN PHOSPHATE
Strength: EQ 1% BASE
Dosage Form/Route: LOTION;TOPICAL
Application: A214526 | Product #001 | TE Code: AB
Applicant: SUN PHARMA CANADA INC
Approved: Jun 28, 2021 | RLD: No | RS: No | Type: RX